FAERS Safety Report 5006657-9 (Version None)
Quarter: 2006Q2

REPORT INFORMATION
  Report Type: 
  Country: None (occurrence: None)
  Receive Date: 20060519
  Receipt Date: 20060208
  Transmission Date: 20061013
  Serious: Yes (Death, Hospitalization)
  Sender: FDA-Public Use
  Company Number: PHMT2006CA00656

PATIENT
  Sex: Female

DRUGS (12)
  1. ZOLEDRONIC ACID [Suspect]
     Indication: HYPERCALCAEMIA
     Dosage: 4 MG, UNK
     Route: 042
     Dates: start: 20051026, end: 20051026
  2. FENTANYL [Concomitant]
     Dosage: 150 UG
     Route: 062
  3. HYDROMORPHONE HCL [Concomitant]
     Dosage: 8 MG, PRN
     Dates: end: 20051102
  4. HYDROMORPHONE HCL [Concomitant]
     Dosage: 2-4 MG Q2H PRN
     Route: 058
     Dates: start: 20051105, end: 20051106
  5. HYDROMORPHONE HCL [Concomitant]
     Dosage: 1.5 MG, Q4H
     Route: 058
     Dates: start: 20051107, end: 20051109
  6. HYDROMORPHONE HCL [Concomitant]
     Dosage: 2 MG Q1H, PRN
     Route: 058
     Dates: start: 20051110
  7. DEXAMETHASONE [Concomitant]
     Dosage: 2 MG
  8. LOSEC [Concomitant]
     Dosage: 20 MG
  9. ASPIRIN [Concomitant]
     Dosage: 81 MG
  10. METFORMIN [Concomitant]
     Dosage: 500 MG
  11. ATACAND [Concomitant]
     Dosage: 12.5 MG
  12. ZYPREXA [Concomitant]
     Dosage: 2.5 MG, QHS

REACTIONS (8)
  - BLOOD ALBUMIN DECREASED [None]
  - BLOOD CREATININE INCREASED [None]
  - DEATH [None]
  - HEART RATE INCREASED [None]
  - HYDRONEPHROSIS [None]
  - OLIGURIA [None]
  - RENAL FAILURE ACUTE [None]
  - SOMNOLENCE [None]
